FAERS Safety Report 4788948-X (Version None)
Quarter: 2005Q4

REPORT INFORMATION
  Report Type: 
  Country: None (occurrence: None)
  Receive Date: 20051004
  Receipt Date: 20050920
  Transmission Date: 20060501
  Serious: Yes (Other)
  Sender: FDA-Public Use
  Company Number: 2005129986

PATIENT
  Age: 9 Month
  Sex: Female
  Weight: 9.9791 kg

DRUGS (1)
  1. BENADRYL [Suspect]
     Indication: COUGH
     Dosage: 3 ML, ORAL
     Route: 048

REACTIONS (4)
  - ANOREXIA [None]
  - DEPRESSED LEVEL OF CONSCIOUSNESS [None]
  - DYSPNOEA [None]
  - EYE SWELLING [None]
